FAERS Safety Report 19607316 (Version 1)
Quarter: 2021Q3

REPORT INFORMATION
  Report Type: Spontaneous
  Country: FR (occurrence: FR)
  Receive Date: 20210726
  Receipt Date: 20210726
  Transmission Date: 20211014
  Serious: Yes (Other)
  Sender: FDA-Public Use
  Company Number: FR-AUROBINDO-AUR-APL-2021-031978

PATIENT
  Age: 40 Year
  Sex: Male

DRUGS (5)
  1. BARITEKAL [Suspect]
     Active Substance: PRILOCAINE HYDROCHLORIDE
     Indication: SPINAL ANAESTHESIA
     Dosage: 60 MILLIGRAM
     Route: 042
     Dates: start: 20210323, end: 20210323
  2. PARACETAMOL [Suspect]
     Active Substance: ACETAMINOPHEN
     Indication: GAIT DISTURBANCE
     Dosage: 1 GRAM
     Route: 042
     Dates: start: 20210323, end: 20210323
  3. ATROPINE. [Suspect]
     Active Substance: ATROPINE
     Indication: SPINAL ANAESTHESIA
     Dosage: 1 MILLIGRAM
     Route: 030
     Dates: start: 20210323, end: 20210323
  4. REMIFENTANIL [Suspect]
     Active Substance: REMIFENTANIL
     Indication: SPINAL ANAESTHESIA
     Dosage: 50 MICROGRAM
     Route: 042
     Dates: start: 20210323, end: 20210323
  5. MIDAZOLAM. [Suspect]
     Active Substance: MIDAZOLAM
     Indication: SPINAL ANAESTHESIA
     Dosage: 1 MILLIGRAM
     Route: 042
     Dates: start: 20210323, end: 20210323

REACTIONS (1)
  - Hepatocellular injury [Recovered/Resolved]

NARRATIVE: CASE EVENT DATE: 20210327
